FAERS Safety Report 10934161 (Version 1)
Quarter: 2015Q1

REPORT INFORMATION
  Report Type: Spontaneous
  Country: FR (occurrence: FR)
  Receive Date: 20150320
  Receipt Date: 20150320
  Transmission Date: 20150721
  Serious: Yes (Hospitalization)
  Sender: FDA-Public Use
  Company Number: FR-ROCHE-1551188

PATIENT
  Age: 5 Year
  Sex: Female

DRUGS (15)
  1. AVASTIN [Suspect]
     Active Substance: BEVACIZUMAB
     Route: 041
     Dates: start: 20140710, end: 20141105
  2. AVASTIN [Suspect]
     Active Substance: BEVACIZUMAB
     Route: 041
     Dates: start: 20110211, end: 20120330
  3. AVASTIN [Suspect]
     Active Substance: BEVACIZUMAB
     Route: 041
     Dates: start: 20140227, end: 20140626
  4. ATARAX [Concomitant]
     Active Substance: HYDROXYZINE\HYDROXYZINE HYDROCHLORIDE
     Dosage: PRESCRIBED IN OCT/2011, START DATE WAS UNKNOWN, CONTINUED IF REQUIRED
     Route: 065
  5. HYDROCORTISONE. [Concomitant]
     Active Substance: HYDROCORTISONE
     Route: 065
     Dates: start: 201103
  6. L-THYROXINE [Concomitant]
     Active Substance: LEVOTHYROXINE
  7. TERCIAN [Concomitant]
     Active Substance: CYAMEMAZINE
     Dosage: PRESCRIBED IN OCTOBER 2011 BUT START AND STOP DATES WERE UNKNOWN
     Route: 065
  8. IRINOTECAN [Concomitant]
     Active Substance: IRINOTECAN
     Route: 065
     Dates: start: 20110211, end: 20120330
  9. IRINOTECAN [Concomitant]
     Active Substance: IRINOTECAN
     Route: 065
     Dates: start: 20140227, end: 20140626
  10. AVASTIN [Suspect]
     Active Substance: BEVACIZUMAB
     Indication: GLIOMA
     Route: 041
     Dates: start: 20110216, end: 20120330
  11. TERCIAN [Concomitant]
     Active Substance: CYAMEMAZINE
     Dosage: REINTRODUCTION IN JANUARY 2015
     Route: 065
     Dates: start: 201501
  12. FORLAX [Concomitant]
     Active Substance: POLYETHYLENE GLYCOL 4000
     Dosage: HALF SACHET DAILY
     Route: 065
  13. DECAPEPTYL [Concomitant]
     Active Substance: TRIPTORELIN ACETATE
     Route: 065
     Dates: start: 201007
  14. THERALENE (FRANCE) [Concomitant]
     Active Substance: TRIMEPRAZINE
     Indication: AGITATION
     Dosage: STARTED BEFORE THE SECOND EPISODE OF PANCREATITIS
     Route: 065
     Dates: start: 201406, end: 201501
  15. LAROXYL [Concomitant]
     Active Substance: AMITRIPTYLINE
     Indication: NEURALGIA

REACTIONS (2)
  - Hypothermia [Recovered/Resolved]
  - Pancreatitis [Recovering/Resolving]

NARRATIVE: CASE EVENT DATE: 20110224
